FAERS Safety Report 19226132 (Version 1)
Quarter: 2021Q2

REPORT INFORMATION
  Report Type: Spontaneous
  Country: FR (occurrence: FR)
  Receive Date: 20210506
  Receipt Date: 20210506
  Transmission Date: 20210717
  Serious: Yes (Disabling)
  Sender: FDA-Public Use
  Company Number: NVSC2021FR095139

PATIENT
  Age: 8 Year
  Sex: Female

DRUGS (7)
  1. VANCOMYCIN [Suspect]
     Active Substance: VANCOMYCIN
     Indication: STAPHYLOCOCCAL INFECTION
     Dosage: 30 MG/KG, QD
     Route: 041
     Dates: start: 20070620, end: 20070622
  2. AMIKLIN [Suspect]
     Active Substance: AMIKACIN SULFATE
     Indication: STAPHYLOCOCCAL INFECTION
     Dosage: UNK (38MG EN IV TOUTES LES 36 HEURES)
     Route: 041
     Dates: start: 20070620, end: 20070621
  3. AMIKLIN [Suspect]
     Active Substance: AMIKACIN SULFATE
     Dosage: 38MG EN IV TOUTES LES 36 HEURES
     Route: 041
     Dates: start: 20070629, end: 20070701
  4. FOSFOCINE [Concomitant]
     Active Substance: FOSFOMYCIN
     Indication: STAPHYLOCOCCAL INFECTION
     Dosage: UNK (210MG SUR 4H TOUTES LES 12HEURES)
     Route: 042
     Dates: start: 20070621, end: 20070708
  5. FLAGYL [Concomitant]
     Active Substance: METRONIDAZOLE\METRONIDAZOLE HYDROCHLORIDE
     Indication: STAPHYLOCOCCAL INFECTION
     Dosage: 32 MG,QD
     Route: 041
     Dates: start: 20070620, end: 20070621
  6. BRISTOPEN [Concomitant]
     Active Substance: OXACILLIN SODIUM
     Indication: STAPHYLOCOCCAL INFECTION
     Dosage: UNK (110MG SUR 30 MINUTES TOUTES LES 12 HEURES)
     Route: 041
     Dates: start: 20070622, end: 20070708
  7. CLAFORAN [Concomitant]
     Active Substance: CEFOTAXIME SODIUM
     Indication: STAPHYLOCOCCAL INFECTION
     Dosage: UNK (110MG SUR 30 MINUTES TOUTES LES 12 HEURES)
     Route: 065
     Dates: start: 20070620, end: 20070621

REACTIONS (1)
  - Deafness bilateral [Not Recovered/Not Resolved]

NARRATIVE: CASE EVENT DATE: 20151027
